FAERS Safety Report 9414936 (Version 9)
Quarter: 2016Q3

REPORT INFORMATION
  Report Type: Report from Study
  Country: CA (occurrence: CA)
  Receive Date: 20130723
  Receipt Date: 20160905
  Transmission Date: 20161109
  Serious: Yes (Other)
  Sender: FDA-Public Use
  Company Number: CA-ROCHE-1190465

PATIENT
  Age: 48 Year
  Sex: Male
  Weight: 85 kg

DRUGS (8)
  1. ALENDRONATE [Concomitant]
     Active Substance: ALENDRONATE SODIUM
  2. ARTHROTEC [Concomitant]
     Active Substance: DICLOFENAC SODIUM\MISOPROSTOL
  3. ASPIRIN. [Concomitant]
     Active Substance: ASPIRIN
  4. ACTEMRA [Suspect]
     Active Substance: TOCILIZUMAB
     Indication: TAKAYASU^S ARTERITIS
     Route: 042
     Dates: start: 20121025
  5. RITUXAN [Suspect]
     Active Substance: RITUXIMAB
     Indication: OFF LABEL USE
  6. RITUXAN [Suspect]
     Active Substance: RITUXIMAB
     Indication: TAKAYASU^S ARTERITIS
     Route: 042
     Dates: start: 20120622, end: 20120706
  7. ACTEMRA [Suspect]
     Active Substance: TOCILIZUMAB
     Route: 042
     Dates: start: 20140904
  8. PREDNISONE. [Concomitant]
     Active Substance: PREDNISONE

REACTIONS (8)
  - Drug ineffective [Unknown]
  - Hypotension [Unknown]
  - Heart rate decreased [Unknown]
  - Injection site extravasation [Recovered/Resolved]
  - Infusion related reaction [Unknown]
  - Weight decreased [Unknown]
  - Off label use [Unknown]
  - Vascular occlusion [Unknown]

NARRATIVE: CASE EVENT DATE: 2013
